FAERS Safety Report 9356175 (Version 2)
Quarter: 2014Q1

REPORT INFORMATION
  Report Type: Report from Study
  Country: AR (occurrence: AR)
  Receive Date: 20130619
  Receipt Date: 20140325
  Transmission Date: 20141002
  Serious: Yes (Other)
  Sender: FDA-Public Use
  Company Number: AR-VIIV HEALTHCARE LIMITED-B0860695B

PATIENT
  Age: 36 Year
  Sex: Female
  Weight: 58 kg

DRUGS (2)
  1. MARAVIROC [Suspect]
     Indication: HIV INFECTION
     Dosage: 150MG TWICE PER DAY
     Route: 048
     Dates: start: 20121220
  2. LOPINAVIR + RITONAVIR [Concomitant]
     Indication: ANTIRETROVIRAL THERAPY
     Route: 048
     Dates: start: 20010415

REACTIONS (1)
  - Anal squamous cell carcinoma [Recovering/Resolving]
